FAERS Safety Report 19080519 (Version 1)
Quarter: 2021Q1

REPORT INFORMATION
  Report Type: Spontaneous
  Country: CR (occurrence: CR)
  Receive Date: 20210331
  Receipt Date: 20210331
  Transmission Date: 20210420
  Serious: Yes (Hospitalization, Other)
  Sender: FDA-Public Use
  Company Number: CR-VALIDUS PHARMACEUTICALS LLC-CR-2021VAL000114

PATIENT
  Age: 68 Year
  Sex: Female

DRUGS (2)
  1. AMLODIPINE [Concomitant]
     Active Substance: AMLODIPINE BESYLATE
     Indication: HYPERTENSION
  2. FUROSEMIDE. [Suspect]
     Active Substance: FUROSEMIDE
     Indication: OEDEMA PERIPHERAL
     Dosage: 40 MG, QD
     Route: 048
     Dates: start: 2016

REACTIONS (5)
  - Anal pruritus [Recovering/Resolving]
  - Rash pruritic [Recovering/Resolving]
  - Vulvovaginal pruritus [Recovering/Resolving]
  - Type IV hypersensitivity reaction [Recovering/Resolving]
  - Rash maculo-papular [Recovering/Resolving]

NARRATIVE: CASE EVENT DATE: 201609
